FAERS Safety Report 13100945 (Version 1)
Quarter: 2017Q1

REPORT INFORMATION
  Report Type: Spontaneous
  Country: FR (occurrence: FR)
  Receive Date: 20170110
  Receipt Date: 20170110
  Transmission Date: 20170428
  Serious: Yes (Other)
  Sender: FDA-Public Use
  Company Number: FR-GALDERMA-FR17000018

PATIENT
  Age: 36 Year
  Sex: Female

DRUGS (4)
  1. LEVOTHYROX [Concomitant]
     Active Substance: LEVOTHYROXINE
     Indication: AUTOIMMUNE THYROIDITIS
  2. AMOXYCILLIN SANDOZ [Concomitant]
     Indication: PRODUCT USED FOR UNKNOWN INDICATION
     Route: 048
     Dates: start: 20161204, end: 20161205
  3. BETNEVAL [Concomitant]
     Active Substance: BETAMETHASONE VALERATE
     Indication: PSORIASIS
     Dates: start: 20161203
  4. CLOBEX [Suspect]
     Active Substance: CLOBETASOL PROPIONATE
     Indication: PSORIASIS
     Dosage: 0.05%
     Route: 061
     Dates: start: 20161203, end: 20161205

REACTIONS (2)
  - Localised oedema [Recovered/Resolved]
  - Pruritus [Recovered/Resolved]

NARRATIVE: CASE EVENT DATE: 20161204
